FAERS Safety Report 4263954-2 (Version None)
Quarter: 2004Q1

REPORT INFORMATION
  Report Type: 
  Country: None (occurrence: None)
  Receive Date: 20040102
  Receipt Date: 20031222
  Transmission Date: 20041129
  Serious: Yes (Hospitalization)
  Sender: FDA-Public Use
  Company Number: NSADSS2002005264

PATIENT
  Age: 24 Year
  Sex: Female

DRUGS (2)
  1. REMICADE [Suspect]
     Indication: CROHN'S DISEASE
     Dosage: 1 IN 1 AS NECESSARY, INTRAVENOUS; INTRAVENOUS DRIP
     Route: 042
     Dates: start: 20010101, end: 20010101
  2. REMICADE [Suspect]
     Indication: CROHN'S DISEASE
     Dosage: 1 IN 1 AS NECESSARY, INTRAVENOUS; INTRAVENOUS DRIP
     Route: 042
     Dates: start: 20020101, end: 20020101

REACTIONS (10)
  - CEREBRAL ARTERY OCCLUSION [None]
  - CEREBROVASCULAR ACCIDENT [None]
  - CYANOSIS [None]
  - EPIDERMAL NECROSIS [None]
  - LEUKOCYTOCLASTIC VASCULITIS [None]
  - MENTAL STATUS CHANGES [None]
  - PRURITUS [None]
  - THROMBOSIS [None]
  - URTICARIA [None]
  - VASCULITIS NECROTISING [None]
